FAERS Safety Report 5369577-6 (Version None)
Quarter: 2007Q2

REPORT INFORMATION
  Report Type: 
  Country: None (occurrence: None)
  Receive Date: 20070625
  Receipt Date: 20070614
  Transmission Date: 20071010
  Serious: Yes (Hospitalization, Other)
  Sender: FDA-Public Use
  Company Number: JP-PFIZER INC-2007041198

PATIENT
  Sex: Female

DRUGS (13)
  1. LIPITOR [Suspect]
     Indication: HYPERLIPIDAEMIA
     Route: 048
     Dates: start: 20070131, end: 20070419
  2. ASPIRIN [Concomitant]
     Indication: CORONARY ARTERY BYPASS
     Dosage: DAILY DOSE:100MG
     Route: 048
  3. ALLOPURINOL [Concomitant]
     Indication: HYPERURICAEMIA
     Dosage: DAILY DOSE:100MG
     Route: 048
  4. GASTER [Concomitant]
     Indication: GASTRITIS
     Dosage: DAILY DOSE:20MG
     Route: 048
  5. CALTAN [Concomitant]
     Indication: HYPERPHOSPHATAEMIA
     Dosage: DAILY DOSE:3GRAM
     Route: 048
  6. MARZULENE [Concomitant]
     Indication: GASTRITIS
     Dosage: DAILY DOSE:2GRAM
     Route: 048
  7. NITOROL R [Concomitant]
     Indication: ANGINA PECTORIS
     Dosage: DAILY DOSE:40MG
     Route: 048
  8. NIVADIL [Concomitant]
     Indication: HYPERLIPIDAEMIA
     Dosage: DAILY DOSE:1.8GRAM
     Route: 048
  9. SEROCRAL [Concomitant]
     Indication: CEREBRAL INFARCTION
     Dosage: DAILY DOSE:60MG
     Route: 048
  10. ALL OTHER THERAPEUTIC PRODUCTS [Concomitant]
     Indication: HYPERPHOSPHATAEMIA
     Dosage: DAILY DOSE:.15MCG
     Route: 048
  11. ADALAT [Concomitant]
     Indication: HYPERTENSION
     Dosage: DAILY DOSE:40MG
     Route: 048
  12. PURSENNID [Concomitant]
     Indication: CONSTIPATION
     Dosage: DAILY DOSE:60MG
     Route: 048
  13. LOSARTAN [Concomitant]
     Indication: HYPERTENSION
     Dosage: DAILY DOSE:100MG
     Route: 048

REACTIONS (1)
  - WHITE BLOOD CELL COUNT DECREASED [None]
